FAERS Safety Report 20925028 (Version 1)
Quarter: 2022Q2

REPORT INFORMATION
  Report Type: Report from Study
  Country: US (occurrence: None)
  Receive Date: 20220607
  Receipt Date: 20220607
  Transmission Date: 20220720
  Serious: Yes (Death)
  Sender: FDA-Public Use
  Company Number: 2022A208943

PATIENT
  Sex: Female

DRUGS (2)
  1. LYNPARZA [Suspect]
     Active Substance: OLAPARIB
     Indication: Anal cancer
     Route: 048
     Dates: start: 202204
  2. LYNPARZA [Suspect]
     Active Substance: OLAPARIB
     Indication: Anal cancer
     Route: 048
     Dates: start: 202203

REACTIONS (1)
  - Death [Fatal]
